FAERS Safety Report 8311466-9 (Version None)
Quarter: 2012Q2

REPORT INFORMATION
  Report Type: 
  Country: None (occurrence: None)
  Receive Date: 20120425
  Receipt Date: 20120420
  Transmission Date: 20120825
  Serious: Yes (Other)
  Sender: FDA-Public Use
  Company Number: PHEH2012US007277

PATIENT
  Sex: Male

DRUGS (3)
  1. GILENYA [Suspect]
     Indication: RELAPSING-REMITTING MULTIPLE SCLEROSIS
     Dosage: 0.5 MG, DAILY
     Route: 048
     Dates: start: 20110908
  2. VITAMIN B COMPLEX CAP [Concomitant]
     Dosage: UNK UKN, OT
  3. VITAMIN D [Concomitant]
     Dosage: 50000 U, WEEKLY

REACTIONS (5)
  - TREMOR [None]
  - CENTRAL NERVOUS SYSTEM LESION [None]
  - WEIGHT DECREASED [None]
  - DECREASED APPETITE [None]
  - TOOTH INFECTION [None]
